FAERS Safety Report 8304047-4 (Version None)
Quarter: 2012Q2

REPORT INFORMATION
  Report Type: 
  Country: None (occurrence: None)
  Receive Date: 20120418
  Receipt Date: 20120405
  Transmission Date: 20120825
  Serious: Yes (Hospitalization)
  Sender: FDA-Public Use
  Company Number: 2012AP000970

PATIENT
  Age: 25 Year
  Sex: Female

DRUGS (7)
  1. FERROUS SULFATE TAB [Concomitant]
  2. LORAZEPAM [Suspect]
     Indication: ACUTE PSYCHOSIS
     Dosage: 1 DF;
  3. RISPERIDONE [Suspect]
     Indication: ACUTE PSYCHOSIS
     Dosage: 2 MG;QD;
  4. HALOPERIDOL [Suspect]
     Indication: ACUTE PSYCHOSIS
     Dosage: 2.5 MG;QD;
  5. FOLIC ACID [Concomitant]
  6. PRENATAL VITAMINS /01549301/ [Concomitant]
  7. AMOXICILLIN [Concomitant]

REACTIONS (12)
  - MAJOR DEPRESSION [None]
  - WHITE BLOOD CELL COUNT INCREASED [None]
  - MATERNAL EXPOSURE DURING PREGNANCY [None]
  - AGITATION [None]
  - NEUROLEPTIC MALIGNANT SYNDROME [None]
  - STREPTOCOCCUS TEST POSITIVE [None]
  - CULTURE URINE POSITIVE [None]
  - BLOOD PRESSURE DECREASED [None]
  - SUICIDAL IDEATION [None]
  - ESCHERICHIA TEST POSITIVE [None]
  - TRANSAMINASES INCREASED [None]
  - DELUSION [None]
